FAERS Safety Report 23321577 (Version 1)
Quarter: 2023Q4

REPORT INFORMATION
  Report Type: Spontaneous
  Country: FR (occurrence: FR)
  Receive Date: 20231220
  Receipt Date: 20231220
  Transmission Date: 20240110
  Serious: Yes (Life-Threatening)
  Sender: FDA-Public Use
  Company Number: FR-ROCHE-3409051

PATIENT
  Age: 75 Year
  Sex: Male

DRUGS (3)
  1. BACTRIM [Suspect]
     Active Substance: SULFAMETHOXAZOLE\TRIMETHOPRIM
     Indication: Prophylaxis
     Dosage: 1 DF, QD,800/160 MG
     Route: 048
     Dates: start: 20230510, end: 20230626
  2. MABTHERA [Suspect]
     Active Substance: RITUXIMAB
     Indication: Renal vasculitis
     Dosage: 1.000DF
     Route: 042
     Dates: start: 20230510
  3. PREDNISONE [Suspect]
     Active Substance: PREDNISONE
     Indication: Renal vasculitis
     Dosage: 35 MG, QD
     Route: 048
     Dates: start: 20230510, end: 20230626

REACTIONS (3)
  - Septic shock [Recovering/Resolving]
  - Anaemia [Recovering/Resolving]
  - Agranulocytosis [Recovering/Resolving]

NARRATIVE: CASE EVENT DATE: 20230626
